FAERS Safety Report 8262970-3 (Version None)
Quarter: 2012Q1

REPORT INFORMATION
  Report Type: 
  Country: None (occurrence: None)
  Receive Date: 20120327
  Receipt Date: 20090330
  Transmission Date: 20120608
  Serious: Yes (Other)
  Sender: FDA-Public Use
  Company Number: PHEH2009US02351

PATIENT
  Age: 59 Year
  Sex: Female
  Weight: 55.3 kg

DRUGS (8)
  1. ASCORBIC ACID [Concomitant]
  2. ALDACTAZIDE [Concomitant]
  3. ZITHROMAX [Concomitant]
  4. MAGNESIUM (MAGNESIUM) [Concomitant]
  5. ALDACTONE [Concomitant]
  6. VALTREX [Concomitant]
  7. GLEEVEC [Suspect]
     Indication: CHRONIC MYELOID LEUKAEMIA
     Dosage: 400 MG, QD, ORAL
     Route: 048
     Dates: start: 20080122
  8. CALCIUM CARBONATE [Concomitant]

REACTIONS (6)
  - NAUSEA [None]
  - BONE PAIN [None]
  - PERICARDIAL EFFUSION [None]
  - OEDEMA PERIPHERAL [None]
  - DIARRHOEA [None]
  - EYE SWELLING [None]
